FAERS Safety Report 5911475-0 (Version None)
Quarter: 2008Q4

REPORT INFORMATION
  Report Type: 
  Country: None (occurrence: None)
  Receive Date: 20081007
  Receipt Date: 20080915
  Transmission Date: 20090506
  Serious: Yes (Other)
  Sender: FDA-Public Use
  Company Number: CA-PFIZER INC-2008083569

PATIENT
  Sex: Female

DRUGS (1)
  1. LYRICA [Suspect]
     Dates: start: 20080101, end: 20080101

REACTIONS (3)
  - IMPAIRED DRIVING ABILITY [None]
  - MUSCLE SPASMS [None]
  - TREMOR [None]
